FAERS Safety Report 4772917-X (Version None)
Quarter: 2005Q3

REPORT INFORMATION
  Report Type: 
  Country: None (occurrence: None)
  Receive Date: 20050916
  Receipt Date: 20050908
  Transmission Date: 20060218
  Serious: Yes (Disabling)
  Sender: FDA-Public Use
  Company Number: 2005-0008460

PATIENT
  Age: 41 Year
  Sex: Male

DRUGS (7)
  1. TENOFOVIR DISOPROXIL FUMARATE (TENOFOVIR DISOPROXIL FUMARATE) [Suspect]
     Indication: HIV INFECTION
     Dosage: 300 MG, 1 IN 1 D, ORAL
     Route: 048
     Dates: start: 20020731, end: 20050501
  2. VIDEX [Suspect]
     Indication: HIV INFECTION
     Dosage: 250 MG, 1 IN 1 D, ORAL
     Route: 048
     Dates: start: 20020731, end: 20050501
  3. LOPINAVIR (LOPINAVIR) [Suspect]
     Indication: HIV INFECTION
     Dosage: 800 MG,  1 IN 1 D, ORAL
     Route: 048
     Dates: start: 20020716, end: 20050501
  4. RITONAVIR (RITONAVIR) [Suspect]
     Dosage: 200 MG, 1 IN 1 D, ORAL
     Route: 048
     Dates: start: 20020716, end: 20050501
  5. OMEPRAZOLE [Concomitant]
  6. MULTIVITAMIN (MULTIVITAMIN) [Concomitant]
  7. ALDACTONE [Concomitant]

REACTIONS (3)
  - ABASIA [None]
  - HEPATIC CIRRHOSIS [None]
  - IMPAIRED WORK ABILITY [None]
